FAERS Safety Report 5652229-2 (Version None)
Quarter: 2008Q1

REPORT INFORMATION
  Report Type: 
  Country: None (occurrence: None)
  Receive Date: 20080304
  Receipt Date: 20080226
  Transmission Date: 20080703
  Serious: Yes (Other)
  Sender: FDA-Public Use
  Company Number: 2008SP003504

PATIENT
  Age: 7 Year
  Sex: Male
  Weight: 30 kg

DRUGS (2)
  1. CLARITIN [Suspect]
     Indication: RHINITIS ALLERGIC
     Dosage: 10 MG UNK PO
     Route: 048
     Dates: start: 20080131, end: 20080202
  2. SINGULAIR [Suspect]
     Indication: ASTHMA
     Dosage: 5 MG PO
     Route: 048
     Dates: start: 20080131, end: 20080202

REACTIONS (2)
  - CONVULSION [None]
  - MUSCLE TWITCHING [None]
